FAERS Safety Report 8136761-8 (Version None)
Quarter: 2012Q1

REPORT INFORMATION
  Report Type: 
  Country: None (occurrence: None)
  Receive Date: 20120214
  Receipt Date: 20120201
  Transmission Date: 20120608
  Serious: No
  Sender: FDA-Public Use
  Company Number: US-B.I. PHARMACEUTICALS,INC./RIDGEFIELD-2011-BP-01725BP

PATIENT
  Sex: Male

DRUGS (2)
  1. MIRAPEX [Suspect]
     Indication: DYSTONIA
     Route: 048
     Dates: start: 20080201
  2. MIRAPEX [Suspect]
     Indication: PARKINSONISM

REACTIONS (8)
  - PAIN [None]
  - PATHOLOGICAL GAMBLING [None]
  - DIZZINESS [None]
  - OBSESSIVE-COMPULSIVE DISORDER [None]
  - EMOTIONAL DISTRESS [None]
  - NICOTINE DEPENDENCE [None]
  - SOMNOLENCE [None]
  - HEADACHE [None]
